FAERS Safety Report 7226012-0 (Version None)
Quarter: 2011Q1

REPORT INFORMATION
  Report Type: 
  Country: None (occurrence: None)
  Receive Date: 20110113
  Receipt Date: 20110104
  Transmission Date: 20110831
  Serious: Yes (Hospitalization)
  Sender: FDA-Public Use
  Company Number: CH-GILEAD-2011-0034853

PATIENT
  Age: 34 Year
  Sex: Female

DRUGS (4)
  1. VIRAMUNE [Concomitant]
     Indication: HIV INFECTION
     Route: 048
     Dates: start: 20100405, end: 20100429
  2. STOCRIN [Concomitant]
     Indication: HIV INFECTION
     Dates: start: 20060101, end: 20100405
  3. TRUVADA [Suspect]
     Indication: HIV INFECTION
     Route: 048
     Dates: start: 20100405, end: 20100503
  4. TRUVADA [Suspect]
     Dates: start: 20060101

REACTIONS (1)
  - DRUG RASH WITH EOSINOPHILIA AND SYSTEMIC SYMPTOMS [None]
